FAERS Safety Report 10095204 (Version 2)
Quarter: 2014Q2

REPORT INFORMATION
  Report Type: Spontaneous
  Country: US (occurrence: US)
  Receive Date: 20140422
  Receipt Date: 20140422
  Transmission Date: 20141212
  Serious: No
  Sender: FDA-Public Use
  Company Number: US-GILEAD-2012-0057094

PATIENT
  Age: 79 Year
  Sex: Female
  Weight: 61.68 kg

DRUGS (15)
  1. LETAIRIS [Suspect]
     Indication: PULMONARY HYPERTENSION
     Dosage: 5 MG, UNK
     Route: 048
     Dates: start: 20110214
  2. AGGRENOX [Concomitant]
     Indication: TRANSIENT ISCHAEMIC ATTACK
  3. ASPIRIN [Concomitant]
  4. ATENOLOL [Concomitant]
  5. BENICAR [Concomitant]
     Indication: BLOOD PRESSURE
  6. SYNTHROID [Concomitant]
  7. PROVENTIL HFA                      /00139501/ [Concomitant]
     Indication: DYSPNOEA
  8. VITAMIN D                          /00107901/ [Concomitant]
  9. CALTRATE                           /00751519/ [Concomitant]
  10. OXYGEN [Concomitant]
     Indication: PULMONARY HYPERTENSION
  11. OXYGEN [Concomitant]
     Indication: HYPOXIA
  12. OXYGEN [Concomitant]
     Indication: RESPIRATORY FAILURE
  13. RECLAST [Concomitant]
     Indication: OSTEOPOROSIS POSTMENOPAUSAL
  14. THERABETIC EYE HEALTH TABS [Concomitant]
     Indication: PROPHYLAXIS
  15. FISH OIL [Concomitant]

REACTIONS (1)
  - Dizziness [Unknown]
